FAERS Safety Report 6221200-4 (Version None)
Quarter: 2009Q2

REPORT INFORMATION
  Report Type: 
  Country: None (occurrence: None)
  Receive Date: 20090610
  Receipt Date: 20090527
  Transmission Date: 20091009
  Serious: No
  Sender: FDA-Public Use
  Company Number: DE-ELI_LILLY_AND_COMPANY-DE200905005254

PATIENT
  Age: 68 Year
  Sex: Female

DRUGS (5)
  1. ZYPREXA [Suspect]
     Indication: SCHIZOPHRENIA
     Dosage: UNK, UNKNOWN
     Route: 065
     Dates: start: 19960101
  2. ST. JOHN'S WORT [Concomitant]
  3. VITAMIN E /00110501/ [Concomitant]
  4. THYROXIN [Concomitant]
  5. GARLIC [Concomitant]

REACTIONS (3)
  - PAIN OF SKIN [None]
  - PARAESTHESIA [None]
  - SKIN HAEMORRHAGE [None]
